FAERS Safety Report 4371570-7 (Version None)
Quarter: 2004Q2

REPORT INFORMATION
  Report Type: 
  Country: None (occurrence: None)
  Receive Date: 20040607
  Receipt Date: 20040526
  Transmission Date: 20050107
  Serious: Yes (Hospitalization)
  Sender: FDA-Public Use
  Company Number: JP-JNJFOC-20040600677

PATIENT
  Sex: Female
  Weight: 43 kg

DRUGS (10)
  1. REMICADE [Suspect]
     Route: 041
     Dates: start: 20040206
  2. REMICADE [Suspect]
     Route: 041
     Dates: start: 20040206
  3. REMICADE [Suspect]
     Indication: RHEUMATOID ARTHRITIS
     Route: 041
     Dates: start: 20040206
  4. RHEUMATREX [Concomitant]
     Indication: RHEUMATOID ARTHRITIS
     Route: 049
     Dates: start: 20010307
  5. RINDERON [Concomitant]
     Indication: RHEUMATOID ARTHRITIS
     Route: 049
  6. VOLTAREN-XR [Concomitant]
     Indication: RHEUMATOID ARTHRITIS
     Route: 054
  7. ONEALFA [Concomitant]
     Dosage: STARTED APPROXIMATELY 2000
     Route: 049
  8. ZANTAC [Concomitant]
     Dosage: STARTED APPROXIMATELY 2000
     Route: 049
  9. CYTOTEC [Concomitant]
     Dosage: STARTED APPROXIMATELY 2000
     Route: 049
  10. INH [Concomitant]
     Indication: PROPHYLAXIS
     Route: 065
     Dates: start: 20040205

REACTIONS (5)
  - BACTERIAL INFECTION [None]
  - HEADACHE [None]
  - METATARSAL EXCISION [None]
  - REFUSAL OF TREATMENT BY PATIENT [None]
  - WOUND INFECTION [None]
